FAERS Safety Report 24152350 (Version 1)
Quarter: 2024Q3

REPORT INFORMATION
  Report Type: Spontaneous
  Country: US (occurrence: US)
  Receive Date: 20240730
  Receipt Date: 20240730
  Transmission Date: 20241016
  Serious: Yes (Other)
  Sender: JOHNSON AND JOHNSON
  Company Number: US-JNJFOC-20240764856

PATIENT
  Sex: Female

DRUGS (4)
  1. STELARA [Suspect]
     Active Substance: USTEKINUMAB
     Indication: Crohn^s disease
     Route: 040
     Dates: start: 202403
  2. STELARA [Suspect]
     Active Substance: USTEKINUMAB
     Route: 058
     Dates: start: 202405
  3. STELARA [Suspect]
     Active Substance: USTEKINUMAB
     Dosage: 90 UNITS NOT MENTIONED
     Route: 058
     Dates: start: 20240716
  4. MESALAMINE [Concomitant]
     Active Substance: MESALAMINE
     Indication: Product used for unknown indication

REACTIONS (2)
  - Haematochezia [Not Recovered/Not Resolved]
  - Colostomy closure [Unknown]

NARRATIVE: CASE EVENT DATE: 20240626
